FAERS Safety Report 23375669 (Version 2)
Quarter: 2024Q1

REPORT INFORMATION
  Report Type: Spontaneous
  Country: IT (occurrence: IT)
  Receive Date: 20240107
  Receipt Date: 20240117
  Transmission Date: 20240409
  Serious: Yes (Other)
  Sender: FDA-Public Use
  Company Number: IT-CELLTRION INC.-2024IT000164

PATIENT

DRUGS (10)
  1. ADALIMUMAB [Suspect]
     Active Substance: ADALIMUMAB\ISOPROPYL ALCOHOL
     Indication: Pyoderma gangrenosum
     Dosage: 160 MG AT WEEK 0 / 160 MILLIGRAM (WEEK 0)
     Route: 058
  2. ADALIMUMAB [Suspect]
     Active Substance: ADALIMUMAB\ISOPROPYL ALCOHOL
     Dosage: 80 MG, Q2WEEKS AT WEEK 2 / 80 MILLIGRAM (WEEK 2)
     Route: 058
  3. ADALIMUMAB [Suspect]
     Active Substance: ADALIMUMAB\ISOPROPYL ALCOHOL
     Dosage: 40 MG, 1/WEEK AT WEEK 4
     Route: 058
  4. ADALIMUMAB [Suspect]
     Active Substance: ADALIMUMAB\ISOPROPYL ALCOHOL
     Dosage: 40 MILLIGRAM, Q2WK (FROM WEEK 4)
     Route: 065
  5. INFLIXIMAB [Suspect]
     Active Substance: INFLIXIMAB
     Indication: Pyoderma gangrenosum
     Dosage: 5 MILLIGRAM/KG
     Route: 042
  6. INFLIXIMAB [Suspect]
     Active Substance: INFLIXIMAB
     Dosage: 5 MILLIGRAM/KG
     Route: 042
  7. PFIZER-BIONTECH COVID-19 VACCINE [Suspect]
     Active Substance: TOZINAMERAN
     Indication: COVID-19 immunisation
     Dosage: 1ST DOSE
     Route: 030
  8. PFIZER-BIONTECH COVID-19 VACCINE [Suspect]
     Active Substance: TOZINAMERAN
     Dosage: 2ND DOSE
     Route: 030
  9. DAPSONE [Suspect]
     Active Substance: DAPSONE
     Indication: Pyoderma gangrenosum
     Route: 065
  10. CYCLOSPORINE [Suspect]
     Active Substance: CYCLOSPORINE
     Indication: Pyoderma gangrenosum
     Route: 065

REACTIONS (7)
  - Pyoderma gangrenosum [Recovering/Resolving]
  - Disease recurrence [Recovering/Resolving]
  - Off label use [Unknown]
  - Drug ineffective for unapproved indication [Unknown]
  - Therapeutic product effect incomplete [Unknown]
  - Drug effective for unapproved indication [Unknown]
  - Intentional product use issue [Unknown]
